FAERS Safety Report 17138402 (Version 1)
Quarter: 2019Q4

REPORT INFORMATION
  Report Type: Spontaneous
  Country: GR (occurrence: GR)
  Receive Date: 20191211
  Receipt Date: 20191211
  Transmission Date: 20200122
  Serious: Yes (Hospitalization, Other)
  Sender: FDA-Public Use
  Company Number: GR-TEVA-2018-GR-973027

PATIENT
  Age: 31 Year
  Sex: Female
  Weight: 60 kg

DRUGS (1)
  1. METHOTREXATE. [Suspect]
     Active Substance: METHOTREXATE
     Indication: ECTOPIC PREGNANCY
     Dosage: 1 MG/KG
     Route: 042
     Dates: start: 20180706, end: 20180707

REACTIONS (14)
  - Bone marrow failure [Recovered/Resolved]
  - Alopecia [Not Recovered/Not Resolved]
  - Visual impairment [Unknown]
  - Pneumonia [Unknown]
  - Aphthous ulcer [Unknown]
  - Acute kidney injury [Recovered/Resolved]
  - Product use in unapproved indication [Unknown]
  - Pyrexia [Unknown]
  - Vomiting [Unknown]
  - Hepatic failure [Unknown]
  - Blister [Unknown]
  - Wound [Unknown]
  - Rash [Not Recovered/Not Resolved]
  - Maternal exposure during pregnancy [Unknown]

NARRATIVE: CASE EVENT DATE: 2018
